FAERS Safety Report 6680982-8 (Version None)
Quarter: 2010Q2

REPORT INFORMATION
  Report Type: 
  Country: None (occurrence: None)
  Receive Date: 20100413
  Receipt Date: 20100413
  Transmission Date: 20101027
  Serious: Yes (Other)
  Sender: FDA-Public Use
  Company Number: None

PATIENT
  Sex: Male
  Weight: 108.8633 kg

DRUGS (1)
  1. LIPITOR [Suspect]
     Indication: BLOOD CHOLESTEROL INCREASED

REACTIONS (4)
  - FATIGUE [None]
  - MYOPATHY [None]
  - NEUROPATHY PERIPHERAL [None]
  - SENSATION OF HEAVINESS [None]
